FAERS Safety Report 8952844 (Version 2)
Quarter: 2012Q4

REPORT INFORMATION
  Report Type: 
  Country: BR (occurrence: BR)
  Receive Date: 20121203
  Receipt Date: 20121206
  Transmission Date: 20130627
  Serious: Yes (Death, Hospitalization)
  Sender: FDA-Public Use
  Company Number: BR-AMGEN-BRASP2012076890

PATIENT
  Age: 51 Year
  Sex: Female
  Weight: 64 kg

DRUGS (1)
  1. ENBREL [Suspect]
     Indication: RHEUMATOID ARTHRITIS
     Dosage: 50 mg, weekly
     Route: 058
     Dates: start: 201203, end: 2012

REACTIONS (6)
  - Multiple sclerosis [Fatal]
  - Weight decreased [Unknown]
  - Pyrexia [Unknown]
  - Condition aggravated [Unknown]
  - Sepsis [Fatal]
  - Pneumonia [Fatal]
